FAERS Safety Report 18050828 (Version 2)
Quarter: 2021Q4

REPORT INFORMATION
  Report Type: Spontaneous
  Country: FR (occurrence: FR)
  Receive Date: 20200721
  Receipt Date: 20211104
  Transmission Date: 20220303
  Serious: Yes (Death, Other)
  Sender: FDA-Public Use
  Company Number: FR-NOVARTISPH-NVSC2020FR202658

PATIENT
  Age: 68 Year
  Sex: Male

DRUGS (3)
  1. PREDNISONE [Suspect]
     Active Substance: PREDNISONE
     Indication: Plasma cell myeloma
     Dosage: 40 MG
     Route: 065
     Dates: start: 20180403
  2. CYCLOPHOSPHAMIDE [Suspect]
     Active Substance: CYCLOPHOSPHAMIDE
     Indication: Plasma cell myeloma
     Dosage: 50 MG
     Route: 065
     Dates: start: 20180403
  3. IXAZOMIB [Suspect]
     Active Substance: IXAZOMIB
     Indication: Plasma cell myeloma
     Dosage: UNK
     Route: 065
     Dates: start: 20180403

REACTIONS (2)
  - Plasma cell myeloma [Fatal]
  - Off label use [Unknown]

NARRATIVE: CASE EVENT DATE: 20180403
